FAERS Safety Report 19448598 (Version 2)
Quarter: 2025Q3

REPORT INFORMATION
  Report Type: Spontaneous
  Country: TR (occurrence: TR)
  Receive Date: 20210622
  Receipt Date: 20250801
  Transmission Date: 20251020
  Serious: Yes (Disabling, Other)
  Sender: ALKEM
  Company Number: None

PATIENT
  Age: 39 Year
  Sex: Male

DRUGS (8)
  1. TACROLIMUS [Suspect]
     Active Substance: TACROLIMUS
     Indication: Immunosuppressant drug therapy
     Route: 065
     Dates: start: 20180705
  2. TACROLIMUS [Suspect]
     Active Substance: TACROLIMUS
     Route: 065
     Dates: start: 20180706
  3. TACROLIMUS [Suspect]
     Active Substance: TACROLIMUS
     Route: 065
     Dates: start: 20180707
  4. TACROLIMUS [Suspect]
     Active Substance: TACROLIMUS
     Route: 065
     Dates: start: 20180708
  5. TACROLIMUS [Suspect]
     Active Substance: TACROLIMUS
     Route: 065
     Dates: start: 20180709
  6. TACROLIMUS [Suspect]
     Active Substance: TACROLIMUS
     Route: 065
     Dates: start: 20180710
  7. TACROLIMUS [Suspect]
     Active Substance: TACROLIMUS
     Route: 065
     Dates: start: 20180711
  8. TACROLIMUS [Suspect]
     Active Substance: TACROLIMUS
     Route: 065
     Dates: start: 20180713

REACTIONS (2)
  - Myelitis transverse [Recovered/Resolved]
  - Polyneuropathy [Recovered/Resolved]

NARRATIVE: CASE EVENT DATE: 20180701
